FAERS Safety Report 15492713 (Version 1)
Quarter: 2018Q4

REPORT INFORMATION
  Report Type: Spontaneous
  Country: US (occurrence: US)
  Receive Date: 20181012
  Receipt Date: 20181012
  Transmission Date: 20190205
  Serious: Yes (Other)
  Sender: FDA-Public Use
  Company Number: US-GLAXOSMITHKLINE-US2018181765

PATIENT
  Sex: Female

DRUGS (1)
  1. ANORO ELLIPTA [Suspect]
     Active Substance: UMECLIDINIUM BROMIDE\VILANTEROL TRIFENATATE
     Indication: CHRONIC OBSTRUCTIVE PULMONARY DISEASE
     Dosage: 1 PUFF(S), QD

REACTIONS (7)
  - Bronchitis [Unknown]
  - Depression [Unknown]
  - Incontinence [Not Recovered/Not Resolved]
  - Pneumonia [Unknown]
  - Product prescribing error [Unknown]
  - Overdose [Unknown]
  - Myocardial infarction [Unknown]
